FAERS Safety Report 8016310-5 (Version None)
Quarter: 2011Q4

REPORT INFORMATION
  Report Type: 
  Country: None (occurrence: None)
  Receive Date: 20111230
  Receipt Date: 20111220
  Transmission Date: 20120403
  Serious: Yes (Hospitalization, Other)
  Sender: FDA-Public Use
  Company Number: FR-MERCK-1102FRA00030

PATIENT
  Age: 67 Year
  Sex: Male

DRUGS (15)
  1. DOXORUBICIN HYDROCHLORIDE [Concomitant]
     Indication: NEUROENDOCRINE TUMOUR
     Route: 042
     Dates: start: 20100706, end: 20100707
  2. ONDANSETRON [Concomitant]
     Route: 042
  3. METOCLOPRAMIDE HYDROCHLORIDE [Concomitant]
     Route: 042
     Dates: start: 20100706, end: 20100707
  4. CALCIUM CARBONATE [Concomitant]
     Route: 065
  5. METHYLPREDNISOLONE SODIUM SUCCINATE [Concomitant]
     Route: 042
     Dates: start: 20100706, end: 20100709
  6. MESNA [Concomitant]
     Route: 042
     Dates: start: 20100706, end: 20100709
  7. ATENOLOL [Concomitant]
     Route: 065
  8. EMEND [Suspect]
     Indication: PROPHYLAXIS OF NAUSEA AND VOMITING
     Route: 048
     Dates: start: 20100706, end: 20100706
  9. IFOSFAMIDE [Suspect]
     Indication: NEUROENDOCRINE TUMOUR
     Route: 042
     Dates: start: 20100706, end: 20100708
  10. HYDROCHLOROTHIAZIDE AND IRBESARTAN [Concomitant]
     Route: 065
  11. INSULIN ASPART [Concomitant]
     Route: 065
  12. IRBESARTAN [Concomitant]
     Route: 065
  13. EMEND [Suspect]
     Route: 048
     Dates: start: 20100707, end: 20100710
  14. REPAGLINIDE [Concomitant]
     Route: 065
  15. VITAMINS (UNSPECIFIED) [Concomitant]
     Route: 065

REACTIONS (2)
  - ENCEPHALOPATHY [None]
  - DRUG INTERACTION [None]
